FAERS Safety Report 9727579 (Version 7)
Quarter: 2021Q4

REPORT INFORMATION
  Report Type: Spontaneous
  Country: FR (occurrence: FR)
  Receive Date: 20131203
  Receipt Date: 20211019
  Transmission Date: 20220303
  Serious: Yes (Congenital Anomaly, Other)
  Sender: FDA-Public Use
  Company Number: FR-ABBOTT-11P-056-0720439-00

PATIENT
  Sex: Female

DRUGS (2)
  1. VALPROATE SODIUM [Suspect]
     Active Substance: VALPROATE SODIUM
     Indication: Maternal exposure timing unspecified
     Route: 064
  2. VALPROATE SODIUM [Suspect]
     Active Substance: VALPROATE SODIUM
     Indication: Maternal exposure timing unspecified
     Route: 064

REACTIONS (25)
  - Psychomotor retardation [Unknown]
  - Autism spectrum disorder [Unknown]
  - Speech disorder [Unknown]
  - Behaviour disorder [Recovering/Resolving]
  - Sleep disorder [Unknown]
  - Facial asymmetry [Unknown]
  - Chromosomal deletion [Unknown]
  - Speech disorder developmental [Unknown]
  - Foetal exposure during pregnancy [Unknown]
  - Agitation [Unknown]
  - Anxiety [Unknown]
  - Stereotypy [Unknown]
  - Ear infection [Unknown]
  - Social problem [Unknown]
  - Frustration tolerance decreased [Unknown]
  - Communication disorder [Unknown]
  - Foetal anticonvulsant syndrome [Unknown]
  - Dysmorphism [Unknown]
  - Strabismus [Unknown]
  - Disturbance in attention [Recovering/Resolving]
  - Mental disability [Unknown]
  - Intentional self-injury [Unknown]
  - Disturbance in attention [Unknown]
  - Language disorder [Unknown]
  - Cognitive disorder [Recovering/Resolving]
